FAERS Safety Report 17315433 (Version 1)
Quarter: 2020Q1

REPORT INFORMATION
  Report Type: Spontaneous
  Country: FR (occurrence: FR)
  Receive Date: 20200124
  Receipt Date: 20200124
  Transmission Date: 20200409
  Serious: Yes (Other)
  Sender: FDA-Public Use
  Company Number: FR-JNJFOC-20200125620

PATIENT
  Age: 89 Year
  Sex: Female
  Weight: 58 kg

DRUGS (3)
  1. NEFOPAM MEDISOL [Suspect]
     Active Substance: NEFOPAM HYDROCHLORIDE
     Indication: GAIT DISTURBANCE
     Dosage: 60 MG PAR JOUR EN PERFUSION SC
     Route: 058
     Dates: start: 20191228
  2. HALDOL [Suspect]
     Active Substance: HALOPERIDOL
     Indication: AGITATION
     Route: 048
     Dates: start: 20191228, end: 20200104
  3. OFLOXACINE [Suspect]
     Active Substance: OFLOXACIN
     Indication: INFECTION
     Route: 048
     Dates: start: 20191228, end: 20200102

REACTIONS (1)
  - Dermatitis exfoliative generalised [Not Recovered/Not Resolved]
